FAERS Safety Report 8565200-8 (Version None)
Quarter: 2012Q3

REPORT INFORMATION
  Report Type: 
  Country: None (occurrence: None)
  Receive Date: 20120803
  Receipt Date: 20120727
  Transmission Date: 20120928
  Serious: Yes (Other)
  Sender: FDA-Public Use
  Company Number: US-GLAXOSMITHKLINE-A0987691A

PATIENT
  Sex: Male

DRUGS (3)
  1. VERAMYST [Suspect]
     Indication: RHINITIS ALLERGIC
     Route: 045
  2. FLONASE [Suspect]
     Indication: RHINITIS ALLERGIC
     Route: 045
  3. NASONEX [Suspect]
     Indication: RHINITIS ALLERGIC
     Route: 045

REACTIONS (2)
  - GLAUCOMA [None]
  - EYE PAIN [None]
